FAERS Safety Report 7465980-9 (Version None)
Quarter: 2011Q2

REPORT INFORMATION
  Report Type: 
  Country: None (occurrence: None)
  Receive Date: 20110509
  Receipt Date: 20100604
  Transmission Date: 20111010
  Serious: No
  Sender: FDA-Public Use
  Company Number: US-ALEXION-A201000647

PATIENT
  Sex: Female

DRUGS (8)
  1. SOLIRIS [Suspect]
     Indication: PAROXYSMAL NOCTURNAL HAEMOGLOBINURIA
     Dosage: UNK
     Dates: start: 20070601
  2. FOLIC ACID [Concomitant]
     Indication: SUPPLEMENTATION THERAPY
     Dosage: UNK
  3. VITAMIN A [Concomitant]
     Dosage: UNK
  4. ORAL CONTRACEPTIVE NOS [Concomitant]
     Dosage: UNK
  5. ANALGESICS [Concomitant]
     Dosage: UNK
  6. EFFEXOR [Concomitant]
     Dosage: UNK
  7. VITAMIN B12                        /00056201/ [Concomitant]
     Indication: SUPPLEMENTATION THERAPY
     Dosage: UNK
  8. COUMADIN [Concomitant]
     Indication: PROPHYLAXIS
     Dosage: UNK

REACTIONS (4)
  - BLOOD PRODUCT TRANSFUSION DEPENDENT [None]
  - CHROMATURIA [None]
  - FUNGAL INFECTION [None]
  - UPPER RESPIRATORY TRACT INFECTION [None]
